FAERS Safety Report 24605719 (Version 1)
Quarter: 2024Q4

REPORT INFORMATION
  Report Type: Spontaneous
  Country: US (occurrence: US)
  Receive Date: 20241111
  Receipt Date: 20241111
  Transmission Date: 20250114
  Serious: No
  Sender: IOVANCE BIOTHERAPEUTICS
  Company Number: US-IOVANCE BIOTHERAPEUTICS, INC-2024IOV000073

PATIENT

DRUGS (2)
  1. AMTAGVI [Suspect]
     Active Substance: LIFILEUCEL
  2. ALDESLEUKIN [Suspect]
     Active Substance: ALDESLEUKIN
     Indication: Interleukin therapy

REACTIONS (1)
  - Malaise [Unknown]

NARRATIVE: CASE EVENT DATE: 20240829
